FAERS Safety Report 7503670-4 (Version None)
Quarter: 2011Q2

REPORT INFORMATION
  Report Type: 
  Country: None (occurrence: None)
  Receive Date: 20110524
  Receipt Date: 20110524
  Transmission Date: 20111010
  Serious: Yes (Other)
  Sender: FDA-Public Use
  Company Number: None

PATIENT
  Age: 38 Year
  Sex: Female
  Weight: 64.4108 kg

DRUGS (2)
  1. PRISTIQ [Suspect]
     Indication: ANXIETY
     Dosage: 1 50MG PILL ONCE DAILY PO
     Route: 048
     Dates: start: 20110420, end: 20110521
  2. PRISTIQ [Suspect]
     Indication: DEPRESSION
     Dosage: 1 50MG PILL ONCE DAILY PO
     Route: 048
     Dates: start: 20110420, end: 20110521

REACTIONS (5)
  - FLUID RETENTION [None]
  - SENSATION OF HEAVINESS [None]
  - HYPOAESTHESIA [None]
  - UNEVALUABLE EVENT [None]
  - OEDEMA PERIPHERAL [None]
